FAERS Safety Report 5909927-2 (Version None)
Quarter: 2008Q4

REPORT INFORMATION
  Report Type: 
  Country: None (occurrence: None)
  Receive Date: 20081002
  Receipt Date: 20080924
  Transmission Date: 20090506
  Serious: Yes (Disabling)
  Sender: FDA-Public Use
  Company Number: APP200800477

PATIENT
  Age: 41 Year
  Sex: Female

DRUGS (13)
  1. MARCAINE [Suspect]
     Indication: LOCAL ANAESTHESIA
     Dosage: SEE IMAGE
     Route: 014
     Dates: start: 20070529, end: 20070529
  2. MARCAINE [Suspect]
     Indication: MUSCULOSKELETAL PAIN
     Dosage: SEE IMAGE
     Route: 014
     Dates: start: 20070529, end: 20070529
  3. MARCAINE [Suspect]
     Indication: LOCAL ANAESTHESIA
     Dosage: SEE IMAGE
     Route: 014
     Dates: start: 20070529
  4. MARCAINE [Suspect]
     Indication: MUSCULOSKELETAL PAIN
     Dosage: SEE IMAGE
     Route: 014
     Dates: start: 20070529
  5. MARCAINE [Suspect]
     Indication: LOCAL ANAESTHESIA
     Dosage: SEE IMAGE
     Route: 014
     Dates: start: 20070824
  6. MARCAINE [Suspect]
     Indication: MUSCULOSKELETAL PAIN
     Dosage: SEE IMAGE
     Route: 014
     Dates: start: 20070824
  7. MARCAINE HYDROCHLORIDE W/ EPINEPHRINE [Suspect]
     Indication: LOCAL ANAESTHESIA
     Dosage: 30 ML, 0.25% RIGHT SHOULDER, INJECTION 0.5%, INTRA-ARTICULAR 30ML, 0.25% 1:100,000
     Route: 014
     Dates: start: 20070529, end: 20070529
  8. MARCAINE HYDROCHLORIDE W/ EPINEPHRINE [Suspect]
     Indication: LOCAL ANAESTHESIA
     Dosage: 30 ML, 0.25% RIGHT SHOULDER, INJECTION 0.5%, INTRA-ARTICULAR 30ML, 0.25% 1:100,000
     Route: 014
     Dates: start: 20070824, end: 20070824
  9. MARCAINE HYDROCHLORIDE W/ EPINEPHRINE [Suspect]
     Indication: LOCAL ANAESTHESIA
     Dosage: 30 ML, 0.25% RIGHT SHOULDER, INJECTION 0.5%, INTRA-ARTICULAR 30ML, 0.25% 1:100,000
     Route: 014
     Dates: start: 20070824, end: 20070824
  10. PAIN PUMP [Suspect]
     Indication: MUSCULOSKELETAL PAIN
     Dates: start: 20070529
  11. PAIN PUMP [Suspect]
     Indication: MUSCULOSKELETAL PAIN
     Dates: start: 20070824
  12. ANCEF [Concomitant]
  13. LACTATED RINGERS (FLEBOBAG RING LACT) [Concomitant]

REACTIONS (2)
  - CHONDROLYSIS [None]
  - MUSCULOSKELETAL PAIN [None]
